FAERS Safety Report 10161356 (Version 1)
Quarter: 2014Q2

REPORT INFORMATION
  Report Type: Spontaneous
  Country: GB (occurrence: GB)
  Receive Date: 20140509
  Receipt Date: 20140509
  Transmission Date: 20141212
  Serious: Yes (Hospitalization)
  Sender: FDA-Public Use
  Company Number: 2014SP002439

PATIENT
  Age: 55 Year
  Sex: Female
  Weight: 53 kg

DRUGS (10)
  1. CISPLATIN [Suspect]
     Indication: OVARIAN CANCER
     Route: 042
     Dates: start: 20140321, end: 20140411
  2. CHLORPHENAMINE [Concomitant]
     Route: 042
  3. CYCLIZINE [Concomitant]
  4. DALTEPARIN [Concomitant]
  5. DEXAMETHASONE [Concomitant]
     Route: 058
  6. HYDROCORTISONE [Concomitant]
  7. LANSOPRAZOLE [Concomitant]
  8. MACROGOL 3350 [Concomitant]
  9. MAGNESIUM ASPARTATE [Concomitant]
  10. PARACETAMOL [Concomitant]

REACTIONS (7)
  - Hypersensitivity [Recovered/Resolved]
  - Wheezing [Recovered/Resolved]
  - Abdominal discomfort [Recovered/Resolved]
  - Flushing [Recovered/Resolved]
  - Hyperhidrosis [Recovered/Resolved]
  - Panic reaction [Recovered/Resolved]
  - Anxiety [Recovered/Resolved]
